FAERS Safety Report 5043279-8 (Version None)
Quarter: 2006Q2

REPORT INFORMATION
  Report Type: 
  Country: None (occurrence: None)
  Receive Date: 20060629
  Receipt Date: 20060614
  Transmission Date: 20061013
  Serious: Yes (Life-Threatening, Disabling)
  Sender: FDA-Public Use
  Company Number: 2006EU001483

PATIENT
  Age: 44 Year
  Sex: Female
  Weight: 60 kg

DRUGS (3)
  1. PROTOPIC [Suspect]
     Indication: VITILIGO
     Dosage: SEE IMAGE
     Route: 061
     Dates: start: 20050901, end: 20060301
  2. PROTOPIC [Suspect]
     Indication: VITILIGO
     Dosage: SEE IMAGE
     Route: 061
     Dates: start: 20060401
  3. MELADININE (METHOXSALEN) [Suspect]
     Indication: VITILIGO
     Dosage: D, ORAL
     Route: 048

REACTIONS (5)
  - BASEDOW'S DISEASE [None]
  - CARDIAC DISORDER [None]
  - DISEASE RECURRENCE [None]
  - GOITRE [None]
  - VITILIGO [None]
